FAERS Safety Report 25710843 (Version 1)
Quarter: 2025Q3

REPORT INFORMATION
  Report Type: Spontaneous
  Country: US (occurrence: US)
  Receive Date: 20250821
  Receipt Date: 20250821
  Transmission Date: 20251020
  Serious: No
  Sender: SANOFI AVENTIS
  Company Number: US-SA-2025SA246147

PATIENT
  Age: 71 Year
  Sex: Female

DRUGS (1)
  1. DUPIXENT [Suspect]
     Active Substance: DUPILUMAB
     Dosage: 300 MG, QOW
     Route: 058

REACTIONS (12)
  - Abdominal discomfort [Unknown]
  - Gastrointestinal disorder [Unknown]
  - Hyperhidrosis [Not Recovered/Not Resolved]
  - Fatigue [Unknown]
  - Decreased appetite [Unknown]
  - Vomiting [Unknown]
  - Constipation [Unknown]
  - Nausea [Unknown]
  - Weight decreased [Unknown]
  - Blood glucose increased [Unknown]
  - Abdominal pain [Not Recovered/Not Resolved]
  - Headache [Unknown]
